FAERS Safety Report 7606092-0 (Version None)
Quarter: 2011Q3

REPORT INFORMATION
  Report Type: 
  Country: None (occurrence: None)
  Receive Date: 20110713
  Receipt Date: 20110701
  Transmission Date: 20111222
  Serious: Yes (Hospitalization)
  Sender: FDA-Public Use
  Company Number: US-ELI_LILLY_AND_COMPANY-US201105003080

PATIENT
  Sex: Male
  Weight: 99.773 kg

DRUGS (3)
  1. HUMULIN R [Suspect]
     Dosage: 24 U, TID
  2. HUMULIN R [Suspect]
     Indication: TYPE 2 DIABETES MELLITUS
     Dosage: 24 U, TID
     Dates: start: 20101014, end: 20110601
  3. LANTUS [Concomitant]
     Dosage: UNK

REACTIONS (5)
  - CHEST DISCOMFORT [None]
  - OEDEMA PERIPHERAL [None]
  - PNEUMONIA [None]
  - BOWEL MOVEMENT IRREGULARITY [None]
  - PRODUCT TAMPERING [None]
